FAERS Safety Report 11134789 (Version 1)
Quarter: 2015Q2

REPORT INFORMATION
  Report Type: Spontaneous
  Country: US (occurrence: US)
  Receive Date: 20150525
  Receipt Date: 20150525
  Transmission Date: 20150821
  Serious: No
  Sender: FDA-Public Use
  Company Number: US-BIOGENIDEC-2015BI068291

PATIENT
  Age: 61 Year
  Sex: Female

DRUGS (8)
  1. ATORVASTATIN CALCIUM. [Concomitant]
     Active Substance: ATORVASTATIN CALCIUM
  2. NITROFURANTIN [Concomitant]
     Active Substance: NITROFURANTOIN
  3. TYLENOL [Concomitant]
     Active Substance: ACETAMINOPHEN
  4. AMPYRA [Concomitant]
     Active Substance: DALFAMPRIDINE
  5. TECFIDERA [Suspect]
     Active Substance: DIMETHYL FUMARATE
     Indication: MULTIPLE SCLEROSIS
     Route: 048
  6. FISH OIL [Concomitant]
     Active Substance: FISH OIL
  7. VESICARE [Concomitant]
     Active Substance: SOLIFENACIN SUCCINATE
  8. BACLOFEN. [Concomitant]
     Active Substance: BACLOFEN

REACTIONS (1)
  - Weight decreased [Unknown]
